FAERS Safety Report 9559656 (Version 1)
Quarter: 2013Q3

REPORT INFORMATION
  Report Type: Spontaneous
  Country: GB (occurrence: GB)
  Receive Date: 20130927
  Receipt Date: 20130927
  Transmission Date: 20140515
  Serious: Yes (Other)
  Sender: FDA-Public Use
  Company Number: GB-AMGEN-GBRSP2013066768

PATIENT
  Age: 71 Year
  Sex: Female
  Weight: 49 kg

DRUGS (4)
  1. PROLIA [Suspect]
     Indication: OSTEOPOROSIS
     Dosage: 60 MG, UNK
     Route: 058
     Dates: start: 201305
  2. CALCIUM [Concomitant]
  3. FISH OIL [Concomitant]
  4. MULTIVITAMIN                       /00097801/ [Concomitant]

REACTIONS (4)
  - Sciatica [Recovering/Resolving]
  - Mood altered [Recovering/Resolving]
  - Quality of life decreased [Recovering/Resolving]
  - Sleep disorder [Recovering/Resolving]
